FAERS Safety Report 23179977 (Version 2)
Quarter: 2023Q4

REPORT INFORMATION
  Report Type: Report from Study
  Country: JP (occurrence: JP)
  Receive Date: 20231114
  Receipt Date: 20231117
  Transmission Date: 20240109
  Serious: Yes (Other)
  Sender: FDA-Public Use
  Company Number: JP-ASTELLAS-2022JP001708

PATIENT
  Age: 70 Year
  Sex: Male

DRUGS (20)
  1. ENFORTUMAB VEDOTIN [Suspect]
     Active Substance: ENFORTUMAB VEDOTIN
     Indication: Malignant neoplasm of renal pelvis
     Dosage: 105 MG (1.25 MG/KG), ONCE WEEKLY FOR THREE CONSECUTIVE WEEKS, INTERRUPTION FOR THE 4TH WEEK
     Route: 041
     Dates: start: 20220112, end: 20220119
  2. ENFORTUMAB VEDOTIN [Suspect]
     Active Substance: ENFORTUMAB VEDOTIN
     Indication: Transitional cell carcinoma
     Dosage: 82 MG (1 MG/KG), ONCE WEEKLY FOR THREE CONSECUTIVE WEEKS, INTERRUPTION FOR THE 4TH WEEK
     Route: 041
     Dates: start: 20220209, end: 20220913
  3. ENFORTUMAB VEDOTIN [Suspect]
     Active Substance: ENFORTUMAB VEDOTIN
     Dosage: 0.75 MG/KG, UNKNOWN FREQ.
     Route: 041
     Dates: start: 20230111
  4. PEMBROLIZUMAB [Suspect]
     Active Substance: PEMBROLIZUMAB
     Indication: Malignant neoplasm of renal pelvis
     Route: 042
     Dates: start: 20181108, end: 20190201
  5. PEMBROLIZUMAB [Suspect]
     Active Substance: PEMBROLIZUMAB
     Route: 042
     Dates: start: 20200619, end: 20211217
  6. AMLODIPINE [Concomitant]
     Active Substance: AMLODIPINE BESYLATE
     Indication: Hypertension
     Route: 048
  7. ISOSORBIDE DINITRATE [Concomitant]
     Active Substance: ISOSORBIDE DINITRATE
     Indication: Diabetes mellitus
     Route: 048
  8. NOVORAPID [Concomitant]
     Active Substance: INSULIN ASPART
     Indication: Diabetes mellitus
     Dosage: 8, 8, 10 IU, THRICE DAILY
     Route: 058
  9. TRESIBA [Concomitant]
     Active Substance: INSULIN DEGLUDEC
     Indication: Diabetes mellitus
     Route: 058
  10. VICTOZA [Concomitant]
     Active Substance: LIRAGLUTIDE
     Indication: Diabetes mellitus
     Dosage: 1.8 MG, AS NEEDED, AT HYPERGLYCAEMIA
     Route: 058
  11. METFORMIN HYDROCHLORIDE [Concomitant]
     Active Substance: METFORMIN HYDROCHLORIDE
     Indication: Diabetes mellitus
     Route: 048
  12. ROSUVASTATIN [Concomitant]
     Active Substance: ROSUVASTATIN
     Indication: Hyperlipidaemia
     Route: 048
  13. ESOMEPRAZOLE [Concomitant]
     Active Substance: ESOMEPRAZOLE
     Indication: Product used for unknown indication
     Dosage: UNK UNK, UNKNOWN FREQ.
     Route: 065
  14. CLOBETASOL [Concomitant]
     Active Substance: CLOBETASOL
     Indication: Erythema
     Dosage: APPROPRIATE DOSE, TWICE DAILY
     Route: 061
     Dates: start: 20220126, end: 20220128
  15. CLOBETASOL [Concomitant]
     Active Substance: CLOBETASOL
     Dosage: APPROPRIATE DOSE, TWICE DAILY
     Route: 061
     Dates: end: 20221014
  16. DIFLUPREDNATE [Concomitant]
     Active Substance: DIFLUPREDNATE
     Indication: Erythema
     Dosage: APPROPRIATE DOSE, TWICE DAILY
     Route: 061
     Dates: start: 20220131, end: 20220325
  17. DIFLUPREDNATE [Concomitant]
     Active Substance: DIFLUPREDNATE
     Indication: Prophylaxis
  18. HEPARINOID [Concomitant]
     Indication: Prophylaxis
     Dosage: UNK UNK, UNKNOWN FREQ.
     Route: 061
  19. ZINC [Concomitant]
     Active Substance: PYRITHIONE ZINC\ZINC\ZINC CHLORIDE
     Indication: Taste disorder
     Route: 048
     Dates: start: 20220408, end: 20220826
  20. METHYLCOBALAMIN [Concomitant]
     Active Substance: METHYLCOBALAMIN
     Indication: Neuropathy peripheral
     Dosage: 0.5 MG, THRICE DAILY
     Route: 048
     Dates: start: 20221214, end: 20230705

REACTIONS (6)
  - Erythema [Recovered/Resolved]
  - Blister [Recovering/Resolving]
  - Neuropathy peripheral [Recovering/Resolving]
  - Skin disorder [Recovered/Resolved]
  - Taste disorder [Recovered/Resolved]
  - Taste disorder [Recovered/Resolved]

NARRATIVE: CASE EVENT DATE: 20220121
